FAERS Safety Report 19092152 (Version 2)
Quarter: 2021Q3

REPORT INFORMATION
  Report Type: Spontaneous
  Country: US (occurrence: US)
  Receive Date: 20210405
  Receipt Date: 20210817
  Transmission Date: 20211014
  Serious: No
  Sender: FDA-Public Use
  Company Number: US-TEVA-2021-US-1890862

PATIENT
  Sex: Male
  Weight: 108.96 kg

DRUGS (11)
  1. COGENTIN [Concomitant]
     Active Substance: BENZTROPINE MESYLATE
  2. CYMBALTA [Concomitant]
     Active Substance: DULOXETINE HYDROCHLORIDE
  3. MOBIC [Concomitant]
     Active Substance: MELOXICAM
  4. LIPITOR [Concomitant]
     Active Substance: ATORVASTATIN CALCIUM
  5. PROPRANOLOL [Concomitant]
     Active Substance: PROPRANOLOL HYDROCHLORIDE
  6. AUSTEDO [Suspect]
     Active Substance: DEUTETRABENAZINE
     Indication: TARDIVE DYSKINESIA
     Dosage: 24 MILLIGRAM DAILY;
     Route: 048
  7. AUSTEDO [Suspect]
     Active Substance: DEUTETRABENAZINE
     Dosage: 48 MILLIGRAM DAILY;
     Route: 065
  8. LAMICTAL [Concomitant]
     Active Substance: LAMOTRIGINE
  9. METOPROLOL. [Concomitant]
     Active Substance: METOPROLOL
  10. PROVIGIL [Concomitant]
     Active Substance: MODAFINIL
  11. CLONAZEPAM. [Concomitant]
     Active Substance: CLONAZEPAM

REACTIONS (8)
  - Depression [Not Recovered/Not Resolved]
  - Inability to afford medication [Unknown]
  - Incorrect dose administered [Unknown]
  - Dyskinesia [Not Recovered/Not Resolved]
  - Essential tremor [Not Recovered/Not Resolved]
  - Dyskinesia [Unknown]
  - Tongue movement disturbance [Unknown]
  - Trismus [Unknown]
